FAERS Safety Report 10880898 (Version 1)
Quarter: 2015Q1

REPORT INFORMATION
  Report Type: Spontaneous
  Country: JP (occurrence: JP)
  Receive Date: 20150303
  Receipt Date: 20150303
  Transmission Date: 20150721
  Serious: Yes (Hospitalization)
  Sender: FDA-Public Use
  Company Number: JP-009507513-1102USA02278

PATIENT

DRUGS (2)
  1. URINORM [Suspect]
     Active Substance: BENZBROMARONE
     Dosage: UNK, DOSAGE IS UNCERTAIN
     Route: 048
  2. ZETIA [Suspect]
     Active Substance: EZETIMIBE
     Dosage: UNK, DOSAGE IS UNCERTAIN
     Route: 048

REACTIONS (1)
  - Liver disorder [Unknown]

NARRATIVE: CASE EVENT DATE: 201102
